FAERS Safety Report 7078786-X (Version None)
Quarter: 2010Q4

REPORT INFORMATION
  Report Type: 
  Country: None (occurrence: None)
  Receive Date: 20101102
  Receipt Date: 20101028
  Transmission Date: 20110411
  Serious: Yes (Life-Threatening)
  Sender: FDA-Public Use
  Company Number: JP-SANOFI-AVENTIS-2010SA055111

PATIENT
  Age: 61 Year
  Sex: Female
  Weight: 45.1 kg

DRUGS (6)
  1. ELPLAT [Suspect]
     Indication: COLON CANCER
     Route: 041
     Dates: start: 20100810, end: 20100810
  2. ELPLAT [Suspect]
     Route: 041
  3. AVASTIN [Suspect]
     Indication: COLON CANCER
     Route: 041
     Dates: start: 20100810, end: 20100810
  4. AVASTIN [Suspect]
     Route: 041
  5. XELODA [Suspect]
     Indication: COLON CANCER
     Route: 048
     Dates: start: 20100810
  6. XELODA [Suspect]
     Route: 048
     Dates: end: 20100914

REACTIONS (1)
  - MYOCARDIAL ISCHAEMIA [None]
